FAERS Safety Report 25848806 (Version 1)
Quarter: 2025Q3

REPORT INFORMATION
  Report Type: Spontaneous
  Country: MX (occurrence: MX)
  Receive Date: 20250925
  Receipt Date: 20250925
  Transmission Date: 20251020
  Serious: Yes (Other)
  Sender: ABBVIE
  Company Number: MX-ABBVIE-6472254

PATIENT
  Age: 63 Year
  Sex: Female
  Weight: 76 kg

DRUGS (5)
  1. HUMIRA [Suspect]
     Active Substance: ADALIMUMAB
     Indication: Rheumatoid arthritis
     Route: 058
     Dates: start: 202502, end: 202502
  2. HUMIRA [Suspect]
     Active Substance: ADALIMUMAB
     Route: 058
     Dates: start: 202503
  3. PROLIA [Concomitant]
     Active Substance: DENOSUMAB
     Indication: Osteoporosis
     Route: 058
  4. METICORTEN [Concomitant]
     Active Substance: PREDNISONE
     Indication: Rheumatoid arthritis
     Dosage: HALF A TABLET
     Route: 048
  5. METHOTREXATE [Suspect]
     Active Substance: METHOTREXATE
     Indication: Product used for unknown indication
     Route: 065

REACTIONS (13)
  - Osteoarthritis [Recovered/Resolved]
  - Alopecia [Recovered/Resolved]
  - Drug hypersensitivity [Unknown]
  - Arthritis [Recovering/Resolving]
  - Injection site pruritus [Recovered/Resolved]
  - Pain [Recovering/Resolving]
  - Pruritus [Recovered/Resolved]
  - Swelling face [Recovered/Resolved]
  - Drug resistance [Unknown]
  - Injection site pruritus [Recovered/Resolved]
  - Arthralgia [Recovered/Resolved]
  - Eye swelling [Recovered/Resolved]
  - Mouth swelling [Recovered/Resolved]

NARRATIVE: CASE EVENT DATE: 20250101
